FAERS Safety Report 7670561 (Version 7)
Quarter: 2013Q4

REPORT INFORMATION
  Report Type: Spontaneous
  Country: US (occurrence: US)
  Receive Date: 20101116
  Receipt Date: 20131107
  Transmission Date: 20140711
  Serious: Yes (Hospitalization, Other)
  Sender: FDA-Public Use
  Company Number: US-ROCHE-718688

PATIENT
  Age: 25 Year
  Sex: Female
  Weight: 74.8 kg

DRUGS (3)
  1. ACCUTANE [Suspect]
     Indication: ACNE
     Route: 048
     Dates: start: 19980203, end: 200105
  2. ACCUTANE [Suspect]
     Route: 048
     Dates: start: 200303, end: 200406
  3. AMNESTEEM [Suspect]
     Indication: PRODUCT USED FOR UNKNOWN INDICATION
     Route: 048
     Dates: start: 20050915

REACTIONS (5)
  - Crohn^s disease [Unknown]
  - Female genital tract fistula [Unknown]
  - Rectovaginal septum abscess [Unknown]
  - Gastrointestinal injury [Unknown]
  - Depression [Recovered/Resolved]
